FAERS Safety Report 8653825 (Version 2)
Quarter: 2012Q4

REPORT INFORMATION
  Report Type: 
  Country: US (occurrence: US)
  Receive Date: 20120709
  Receipt Date: 20120830
  Transmission Date: 20130627
  Serious: Yes (Other)
  Sender: FDA-Public Use
  Company Number: PHEH2012US013262

PATIENT
  Sex: Female
  Weight: 56.46 kg

DRUGS (1)
  1. RECLAST [Suspect]
     Dosage: Yearly injection
     Route: 042

REACTIONS (4)
  - Ankle fracture [Unknown]
  - Fall [Unknown]
  - Fibula fracture [Unknown]
  - Impaired healing [Unknown]
